FAERS Safety Report 17209475 (Version 3)
Quarter: 2020Q1

REPORT INFORMATION
  Report Type: Spontaneous
  Country: JP (occurrence: JP)
  Receive Date: 20191227
  Receipt Date: 20200228
  Transmission Date: 20200409
  Serious: Yes (Death, Other)
  Sender: FDA-Public Use
  Company Number: JP-PFIZER INC-2019556978

PATIENT
  Age: 88 Year
  Sex: Male
  Weight: 65 kg

DRUGS (10)
  1. REPATHA [Suspect]
     Active Substance: EVOLOCUMAB
     Indication: HEPATIC FUNCTION ABNORMAL
     Dosage: UNK
     Route: 058
     Dates: start: 20191023
  2. SODIUM RABEPRAZOLE [Concomitant]
     Active Substance: RABEPRAZOLE SODIUM
     Indication: GLOMERULONEPHRITIS MEMBRANOUS
     Dosage: 10 MG, 1X/DAY
     Route: 048
     Dates: start: 20190902, end: 20191021
  3. AZILVA [Concomitant]
     Active Substance: AZILSARTAN KAMEDOXOMIL
     Indication: HYPERTENSION
     Dosage: 20 MG, 1X/DAY
     Route: 048
     Dates: start: 20190902, end: 20191022
  4. CLOPIDOGREL [Concomitant]
     Active Substance: CLOPIDOGREL BISULFATE
     Indication: LACUNAR INFARCTION
     Dosage: 75 MG, 1X/DAY
     Route: 048
     Dates: start: 20190902, end: 20191021
  5. FEBURIC [Concomitant]
     Active Substance: FEBUXOSTAT
     Indication: HYPERURICAEMIA
     Dosage: 20 MG, 1X/DAY
     Route: 048
     Dates: start: 20190902, end: 20191022
  6. PREDONINE [Concomitant]
     Active Substance: PREDNISOLONE
     Indication: GLOMERULONEPHRITIS MEMBRANOUS
     Dosage: 25 MG, 1X/DAY
     Route: 041
     Dates: start: 20191022, end: 20191103
  7. PREDONINE [Concomitant]
     Active Substance: PREDNISOLONE
     Indication: GLOMERULONEPHRITIS MEMBRANOUS
     Dosage: 15 MG, 2X/DAY
     Route: 048
     Dates: start: 20190902, end: 20191021
  8. OMEPRAZOLE. [Concomitant]
     Active Substance: OMEPRAZOLE
     Indication: GLOMERULONEPHRITIS MEMBRANOUS
     Dosage: 20 MG, 2X/DAY
     Route: 041
     Dates: start: 20191023, end: 20191103
  9. LIPITOR [Suspect]
     Active Substance: ATORVASTATIN CALCIUM
     Indication: DYSLIPIDAEMIA
     Dosage: 10 MG, 1X/DAY
     Route: 048
     Dates: start: 20190902, end: 20191021
  10. FUROSEMIDE. [Concomitant]
     Active Substance: FUROSEMIDE
     Indication: GLOMERULONEPHRITIS MEMBRANOUS
     Dosage: 40 MG, 1X/DAY
     Route: 048
     Dates: start: 20190902, end: 20191021

REACTIONS (7)
  - Hypoxia [Fatal]
  - Cardio-respiratory arrest [Unknown]
  - Infection [Unknown]
  - Blood pressure decreased [Unknown]
  - Hypoglycaemia [Unknown]
  - Drug-induced liver injury [Unknown]
  - Lactic acidosis [Unknown]

NARRATIVE: CASE EVENT DATE: 20191104
